FAERS Safety Report 9838319 (Version 1)
Quarter: 2013Q4

REPORT INFORMATION
  Report Type: Spontaneous
  Country: US (occurrence: None)
  Receive Date: 20131205
  Receipt Date: 20131205
  Transmission Date: 20140711
  Serious: Yes (Hospitalization, Other)
  Sender: FDA-Public Use
  Company Number: 163-POMAL-13093085

PATIENT
  Age: 63 Year
  Sex: Female

DRUGS (1)
  1. POMALYST [Suspect]
     Indication: PLASMA CELL MYELOMA
     Dosage: 21 IN 28 D
     Dates: start: 20130905, end: 20131001

REACTIONS (7)
  - Renal failure [None]
  - Plasma cell myeloma [None]
  - Malaise [None]
  - Nervousness [None]
  - Headache [None]
  - Crying [None]
  - Epistaxis [None]
